FAERS Safety Report 10886798 (Version 1)
Quarter: 2015Q1

REPORT INFORMATION
  Report Type: Spontaneous
  Country: CH (occurrence: CH)
  Receive Date: 20150304
  Receipt Date: 20150304
  Transmission Date: 20150721
  Serious: Yes (Other)
  Sender: FDA-Public Use
  Company Number: PHHY2015CH023442

PATIENT
  Age: 38 Year
  Sex: Male
  Weight: 78 kg

DRUGS (8)
  1. CETALLERG [Suspect]
     Active Substance: CETIRIZINE HYDROCHLORIDE
     Indication: SEASONAL ALLERGY
     Dosage: 10 MG, UNK
     Route: 048
  2. VITAMIN E-MEPHA [Concomitant]
     Indication: ANTIOXIDANT THERAPY
     Dosage: 300 MG, QD
     Route: 048
     Dates: start: 20140510
  3. VI-DE 3 [Concomitant]
     Indication: VITAMIN D DEFICIENCY
     Dosage: 25 GTT, QD
     Route: 048
     Dates: start: 20131215, end: 20140414
  4. TRIENTINE [Suspect]
     Active Substance: TRIENTINE
     Indication: PULMONARY DYSMATURITY SYNDROME
     Dosage: 600 MG, TID
     Route: 048
     Dates: start: 20141016
  5. METALITE [Suspect]
     Active Substance: TRIENTINE HYDROCHLORIDE
     Indication: PULMONARY DYSMATURITY SYNDROME
     Dosage: UNK
     Route: 048
     Dates: start: 20140510, end: 20141015
  6. SALOFALK//MESALAZINE [Suspect]
     Active Substance: MESALAMINE
     Indication: PROCTITIS ULCERATIVE
     Dosage: 500 MG, QD
     Route: 054
     Dates: start: 20111115
  7. VITAMIN D3 [Concomitant]
     Active Substance: CHOLECALCIFEROL
     Indication: VITAMIN D DEFICIENCY
     Dosage: 54 UG, BIW
     Route: 048
     Dates: start: 20140415
  8. ZINK VERLA [Suspect]
     Active Substance: ZINC GLUCONATE
     Indication: PULMONARY DYSMATURITY SYNDROME
     Dosage: 60 MG, TID
     Route: 048
     Dates: start: 201001, end: 20140409

REACTIONS (9)
  - Hepatic steatosis [None]
  - Drug ineffective [Recovered/Resolved]
  - Blood 25-hydroxycholecalciferol decreased [None]
  - Calculus ureteric [None]
  - Nephrolithiasis [Recovered/Resolved]
  - Liver disorder [Recovered/Resolved]
  - Proctitis ulcerative [Recovering/Resolving]
  - Urine copper increased [None]
  - Liver injury [None]

NARRATIVE: CASE EVENT DATE: 2011
